FAERS Safety Report 7043935-6 (Version None)
Quarter: 2010Q4

REPORT INFORMATION
  Report Type: 
  Country: None (occurrence: None)
  Receive Date: 20101013
  Receipt Date: 20101007
  Transmission Date: 20110411
  Serious: Yes (Life-Threatening, Other)
  Sender: FDA-Public Use
  Company Number: US-AMGEN-QUU440208

PATIENT
  Sex: Female
  Weight: 54.9 kg

DRUGS (8)
  1. NPLATE [Suspect]
     Indication: IDIOPATHIC THROMBOCYTOPENIC PURPURA
     Route: 058
     Dates: start: 20100607
  2. CORTICOSTEROIDS [Concomitant]
     Dates: start: 20100521
  3. PREDNISONE [Concomitant]
  4. LASIX [Concomitant]
  5. OXYCODONE HCL [Concomitant]
  6. PEPCID [Concomitant]
  7. FELDENE [Concomitant]
  8. KADIAN [Concomitant]

REACTIONS (2)
  - BLOOD SMEAR TEST ABNORMAL [None]
  - DEEP VEIN THROMBOSIS [None]
